FAERS Safety Report 10966550 (Version 1)
Quarter: 2015Q1

REPORT INFORMATION
  Report Type: Spontaneous
  Country: US (occurrence: None)
  Receive Date: 20150226
  Receipt Date: 20150226
  Transmission Date: 20150721
  Serious: No
  Sender: FDA-Public Use
  Company Number: TPA2010A05075

PATIENT
  Age: 72 Year
  Sex: Female
  Weight: 50.8 kg

DRUGS (6)
  1. ULORIC [Suspect]
     Active Substance: FEBUXOSTAT
     Indication: GOUT
     Route: 048
     Dates: start: 20100907, end: 20100909
  2. ASPIRIN (ACETYLSALICYLIC ACID) [Concomitant]
     Active Substance: ASPIRIN
  3. INDOMETHACIN (INDOMTHACIN) [Concomitant]
  4. VALIUM [Concomitant]
     Active Substance: DIAZEPAM
  5. VITAMIN C [Concomitant]
     Active Substance: ASCORBIC ACID
  6. FISH OIL (FISH OIL) [Concomitant]
     Active Substance: FISH OIL

REACTIONS (3)
  - Diarrhoea [None]
  - Condition aggravated [None]
  - Weight decreased [None]

NARRATIVE: CASE EVENT DATE: 20100907
